FAERS Safety Report 6580399-0 (Version None)
Quarter: 2010Q1

REPORT INFORMATION
  Report Type: 
  Country: None (occurrence: None)
  Receive Date: 20100212
  Receipt Date: 20100202
  Transmission Date: 20100710
  Serious: Yes (Hospitalization)
  Sender: FDA-Public Use
  Company Number: PHHY2010GB06691

PATIENT
  Sex: Female

DRUGS (2)
  1. CLOZARIL [Suspect]
     Indication: SCHIZOPHRENIA
     Dosage: 500 MG, QD
     Route: 048
     Dates: start: 20091120
  2. CLOZARIL [Suspect]
     Dosage: UNK
     Route: 048
     Dates: start: 20100130

REACTIONS (4)
  - CHOLECYSTECTOMY [None]
  - HAEMATEMESIS [None]
  - JAUNDICE CHOLESTATIC [None]
  - OESOPHAGITIS [None]
